FAERS Safety Report 7574953-7 (Version None)
Quarter: 2011Q2

REPORT INFORMATION
  Report Type: 
  Country: None (occurrence: None)
  Receive Date: 20110627
  Receipt Date: 20100116
  Transmission Date: 20111010
  Serious: Yes (Death, Hospitalization, Other)
  Sender: FDA-Public Use
  Company Number: US-BAYER-201011406NA

PATIENT
  Age: 75 Year
  Sex: Male

DRUGS (21)
  1. DIOVAN [Concomitant]
     Dosage: 80 MG, QD LONG TERM USE
     Route: 048
  2. COREG [Concomitant]
     Dosage: 25 MG, BID LONG TERM USE
     Route: 048
  3. TESTOSTERONE [Concomitant]
     Dosage: LONG TERM USE
     Route: 061
  4. CALCIUM CARBONATE [Concomitant]
     Dosage: 1 TABLET AT NOON (LONG TERM USE)
     Route: 048
  5. VITAMIN E [Concomitant]
     Dosage: 400 IU, QD
     Route: 048
  6. PLAVIX [Concomitant]
     Dosage: 75 MG, QD LONG TERM USE
     Route: 048
  7. NORVASC [Concomitant]
     Dosage: 10 MG, QD LONG TERM USE
     Route: 048
  8. MAGNESIUM [Concomitant]
     Dosage: 1 TABLET AT NOON (LONG TERM USE)
     Route: 048
  9. LIPITOR [Concomitant]
     Dosage: 40 MG, HS LONG TERM USE
     Route: 048
  10. HYTRIN [Concomitant]
     Dosage: 10 MG, HS LONG TERM USE
     Route: 048
  11. COD LIVER OIL [Concomitant]
     Dosage: 1 TABLET AT NOON (LONG TERM USE)
     Route: 048
  12. FOLIC ACID [Concomitant]
     Dosage: 400 IU, QD
     Route: 048
  13. K-DUR [Concomitant]
     Dosage: 20 MEQ, TID LONG TERM USE
     Route: 048
  14. ACCUPRIL [Concomitant]
     Dosage: 40 MG, BID LONG TERM USE
     Route: 048
  15. LASIX [Concomitant]
     Dosage: 40 MG, TID LONG TERM USE
     Route: 048
  16. TRASYLOL [Suspect]
     Indication: CORONARY ARTERY BYPASS
     Route: 042
     Dates: start: 20021001
  17. CLONIDINE [Concomitant]
     Dosage: CHANGE EVERY FRIDAY (LONG TERM USE)
     Route: 061
  18. TRENTAL [Concomitant]
     Dosage: 400 MG, QD (LONG TERM USE)
     Route: 048
  19. ZINC OXIDE [ZINC OXIDE] [Concomitant]
     Dosage: 1 TABLET AT NOON (LONG TERM USE)
     Route: 048
  20. ACETYLSALICYLIC ACID SRT [Concomitant]
     Dosage: 325 MG, QD LONG TERM USE
     Route: 048
  21. ALLEGRA [Concomitant]
     Dosage: 60 MG, BID LONG TERM USE
     Route: 048

REACTIONS (14)
  - RENAL INJURY [None]
  - UNEVALUABLE EVENT [None]
  - RENAL FAILURE [None]
  - CARDIAC DISORDER [None]
  - RENAL IMPAIRMENT [None]
  - ANXIETY [None]
  - PAIN [None]
  - ANHEDONIA [None]
  - CEREBROVASCULAR ACCIDENT [None]
  - FEAR [None]
  - DEATH [None]
  - DEPRESSION [None]
  - INJURY [None]
  - ORGAN FAILURE [None]
